FAERS Safety Report 13080985 (Version 1)
Quarter: 2017Q1

REPORT INFORMATION
  Report Type: Spontaneous
  Country: US (occurrence: US)
  Receive Date: 20170103
  Receipt Date: 20170103
  Transmission Date: 20170428
  Serious: No
  Sender: FDA-Public Use
  Company Number: US-SHIRE-US201619661

PATIENT
  Sex: Female

DRUGS (1)
  1. XIIDRA [Suspect]
     Active Substance: LIFITEGRAST
     Indication: PRODUCT USED FOR UNKNOWN INDICATION
     Dosage: UNK UNK, UNKNOWN
     Route: 065
     Dates: start: 2016

REACTIONS (5)
  - Hypersensitivity [Unknown]
  - Instillation site pain [Unknown]
  - Blepharitis [Unknown]
  - Eye inflammation [Unknown]
  - Instillation site pruritus [Unknown]
